FAERS Safety Report 5714517-0 (Version None)
Quarter: 2008Q2

REPORT INFORMATION
  Report Type: 
  Country: None (occurrence: None)
  Receive Date: 20080423
  Receipt Date: 20080416
  Transmission Date: 20081010
  Serious: Yes (Hospitalization, Other)
  Sender: FDA-Public Use
  Company Number: GB-AVENTIS-200811411EU

PATIENT
  Sex: Male

DRUGS (5)
  1. ENOXAPARIN SODIUM [Suspect]
     Dosage: DOSE: UNK
  2. PLAVIX [Suspect]
     Dosage: DOSE: UNK
  3. ASPIRIN [Concomitant]
  4. WARFARIN SODIUM [Concomitant]
  5. WARFARIN SODIUM [Concomitant]

REACTIONS (3)
  - COMPARTMENT SYNDROME [None]
  - HAEMATOMA [None]
  - NECROSIS [None]
